FAERS Safety Report 19773966 (Version 1)
Quarter: 2021Q3

REPORT INFORMATION
  Report Type: Spontaneous
  Country: US (occurrence: US)
  Receive Date: 20210901
  Receipt Date: 20210901
  Transmission Date: 20211014
  Serious: No
  Sender: FDA-Public Use
  Company Number: US-JNJFOC-20210822618

PATIENT
  Age: 24 Year
  Sex: Female
  Weight: 59.02 kg

DRUGS (3)
  1. ZYRTEC [Concomitant]
     Active Substance: CETIRIZINE HYDROCHLORIDE
     Indication: PRODUCT USED FOR UNKNOWN INDICATION
     Route: 065
  2. TREMFYA [Suspect]
     Active Substance: GUSELKUMAB
     Indication: PSORIASIS
     Dosage: 100.00 MG/ML
     Route: 065
  3. CLOBETASOL [Concomitant]
     Active Substance: CLOBETASOL
     Indication: PRODUCT USED FOR UNKNOWN INDICATION

REACTIONS (4)
  - Injury associated with device [Unknown]
  - Accidental exposure to product [Unknown]
  - Product dose omission issue [Unknown]
  - Syringe issue [Unknown]

NARRATIVE: CASE EVENT DATE: 20210713
